FAERS Safety Report 8952284 (Version 1)
Quarter: 2012Q4

REPORT INFORMATION
  Report Type: 
  Country: BR (occurrence: BR)
  Receive Date: 20121205
  Receipt Date: 20121205
  Transmission Date: 20130627
  Serious: Yes (Other)
  Sender: FDA-Public Use
  Company Number: BR-AMGEN-BRASP2012077175

PATIENT
  Age: 61 Year
  Sex: Female
  Weight: 80 kg

DRUGS (3)
  1. ENBREL [Suspect]
     Indication: RHEUMATOID ARTHRITIS
     Dosage: 50 mg, weekly
     Route: 058
     Dates: start: 20080305, end: 201205
  2. BUDICORT [Concomitant]
     Dosage: UNK UNK, UNK
  3. ARAVA [Concomitant]
     Dosage: 20 mg, 1x/day
     Route: 048

REACTIONS (1)
  - Lung infection [Unknown]
